FAERS Safety Report 22382385 (Version 1)
Quarter: 2023Q2

REPORT INFORMATION
  Report Type: Spontaneous
  Country: US (occurrence: US)
  Receive Date: 20230530
  Receipt Date: 20230530
  Transmission Date: 20230722
  Serious: No
  Sender: FDA-Public Use
  Company Number: US-002147023-NVSC2023US122585

PATIENT
  Sex: Female

DRUGS (1)
  1. ALBUTEROL SULFATE [Suspect]
     Active Substance: ALBUTEROL SULFATE
     Indication: Bronchitis
     Dosage: UNK
     Route: 065

REACTIONS (6)
  - Lacrimation increased [Unknown]
  - Hypoaesthesia oral [Unknown]
  - Cough [Unknown]
  - Anxiety [Unknown]
  - Muscle spasms [Unknown]
  - Wheezing [Unknown]
